FAERS Safety Report 7679062-4 (Version None)
Quarter: 2011Q3

REPORT INFORMATION
  Report Type: 
  Country: None (occurrence: None)
  Receive Date: 20110812
  Receipt Date: 20110310
  Transmission Date: 20111222
  Serious: Yes (Other)
  Sender: FDA-Public Use
  Company Number: NL-AMGEN-NLDSP2010013411

PATIENT
  Age: 51 Year
  Sex: Female

DRUGS (5)
  1. ATROPIN                            /00002801/ [Concomitant]
     Dosage: UNK
  2. PANTOZOL                           /01263202/ [Concomitant]
     Dosage: 40 MG, UNK
  3. ASCAL                              /00002702/ [Concomitant]
     Dosage: 75 MG, UNK
     Dates: start: 19980101
  4. OMEGA 3                            /01334101/ [Concomitant]
     Dosage: UNK
  5. ENBREL [Suspect]
     Indication: RHEUMATOID ARTHRITIS
     Dosage: 50 MG, WEEKLY
     Dates: start: 20101125

REACTIONS (3)
  - HEADACHE [None]
  - OEDEMA PERIPHERAL [None]
  - INJECTION SITE ERYTHEMA [None]
